FAERS Safety Report 9251617 (Version 1)
Quarter: 2013Q2

REPORT INFORMATION
  Report Type: Spontaneous
  Country: US (occurrence: US)
  Receive Date: 20130424
  Receipt Date: 20130424
  Transmission Date: 20140414
  Serious: Yes (Disabling, Other)
  Sender: FDA-Public Use
  Company Number: US-PFIZER INC-2013123937

PATIENT
  Sex: Male

DRUGS (2)
  1. EFFEXOR [Suspect]
     Dosage: UNK
  2. EFFEXOR XR [Suspect]

REACTIONS (5)
  - Brain injury [Unknown]
  - Back pain [Unknown]
  - Limb discomfort [Unknown]
  - Arthropathy [Unknown]
  - Accident [Unknown]
